FAERS Safety Report 14006447 (Version 1)
Quarter: 2017Q3

REPORT INFORMATION
  Report Type: Spontaneous
  Country: US (occurrence: US)
  Receive Date: 20170925
  Receipt Date: 20170925
  Transmission Date: 20171128
  Serious: Yes (Hospitalization)
  Sender: FDA-Public Use
  Company Number: US-CONCORDIA PHARMACEUTICALS INC.-GSH201709-005436

PATIENT
  Sex: Female
  Weight: 65.4 kg

DRUGS (9)
  1. METHOREXATE [Suspect]
     Active Substance: METHOTREXATE SODIUM
     Route: 065
  2. ENBREL [Suspect]
     Active Substance: ETANERCEPT
     Route: 065
     Dates: start: 2015
  3. HUMIRA [Suspect]
     Active Substance: ADALIMUMAB
     Indication: RHEUMATOID ARTHRITIS
     Route: 065
  4. PLAQUENIL [Suspect]
     Active Substance: HYDROXYCHLOROQUINE SULFATE
     Indication: RHEUMATOID ARTHRITIS
     Route: 065
  5. METHOREXATE [Suspect]
     Active Substance: METHOTREXATE SODIUM
     Indication: RHEUMATOID ARTHRITIS
     Route: 065
     Dates: start: 2015
  6. SULFASALAZINE. [Suspect]
     Active Substance: SULFASALAZINE
     Indication: RHEUMATOID ARTHRITIS
     Route: 065
  7. PREDNISONE. [Concomitant]
     Active Substance: PREDNISONE
  8. XELJANZ [Concomitant]
     Active Substance: TOFACITINIB CITRATE
  9. GINGER. [Concomitant]
     Active Substance: GINGER

REACTIONS (14)
  - Nausea [Unknown]
  - Pleuropericarditis [Unknown]
  - Influenza like illness [Unknown]
  - Depressed mood [Unknown]
  - Hysterectomy [Unknown]
  - Rheumatoid arthritis [Unknown]
  - Synovitis [Unknown]
  - Limb discomfort [Unknown]
  - Finger deformity [Unknown]
  - Appendicectomy [Unknown]
  - Gastrointestinal disorder [Unknown]
  - Headache [Unknown]
  - Cardiac ablation [Unknown]
  - Vitamin D deficiency [Unknown]

NARRATIVE: CASE EVENT DATE: 2015
